FAERS Safety Report 8056826 (Version 25)
Quarter: 2017Q3

REPORT INFORMATION
  Report Type: Report from Study
  Country: CA (occurrence: CA)
  Receive Date: 20110727
  Receipt Date: 20170815
  Transmission Date: 20171128
  Serious: Yes (Hospitalization, Other)
  Sender: FDA-Public Use
  Company Number: PHHY2011CA64186

PATIENT
  Age: 59 Year
  Sex: Male

DRUGS (7)
  1. NOVO SILDENAFIL [Concomitant]
     Indication: PRODUCT USED FOR UNKNOWN INDICATION
     Dosage: 100 MG, PRN
     Route: 065
  2. DOSTINEX [Concomitant]
     Active Substance: CABERGOLINE
     Indication: PRODUCT USED FOR UNKNOWN INDICATION
     Dosage: 0.5 MG, BIW
     Route: 065
  3. ROSUVASTATIN. [Concomitant]
     Active Substance: ROSUVASTATIN
     Indication: BLOOD CHOLESTEROL ABNORMAL
     Dosage: 10 MG, QD
     Route: 065
  4. SYNTHROID [Concomitant]
     Active Substance: LEVOTHYROXINE SODIUM
     Dosage: 0.112 MG, QD
     Route: 065
  5. SANDOSTATIN LAR DEPOT [Suspect]
     Active Substance: OCTREOTIDE ACETATE
     Indication: ADENOMA BENIGN
     Dosage: 20 MG, QMO (EVERY 4 WEEKS)
     Route: 030
     Dates: start: 20060626
  6. WELLBUTRIN [Concomitant]
     Active Substance: BUPROPION HYDROCHLORIDE
     Indication: PRODUCT USED FOR UNKNOWN INDICATION
     Dosage: 150 MG, QD
     Route: 065
     Dates: start: 2016
  7. SYNTHROID [Concomitant]
     Active Substance: LEVOTHYROXINE SODIUM
     Indication: PRODUCT USED FOR UNKNOWN INDICATION
     Dosage: 0.100 MG, QD
     Route: 065

REACTIONS (32)
  - Productive cough [Recovered/Resolved]
  - Skin plaque [Recovering/Resolving]
  - Pain in extremity [Unknown]
  - Induration [Unknown]
  - Wound [Unknown]
  - Hypersensitivity [Unknown]
  - Localised infection [Recovering/Resolving]
  - Erythema [Unknown]
  - Influenza [Recovered/Resolved]
  - Laceration [Unknown]
  - Psoriasis [Recovering/Resolving]
  - Body temperature decreased [Unknown]
  - Phlebitis [Unknown]
  - Bloody discharge [Unknown]
  - Depression [Unknown]
  - General physical condition abnormal [Unknown]
  - Pyrexia [Recovered/Resolved]
  - Blood pressure systolic increased [Unknown]
  - Heart rate increased [Unknown]
  - Mass [Recovered/Resolved]
  - Movement disorder [Unknown]
  - Hypotension [Unknown]
  - Dizziness [Recovered/Resolved]
  - Blood pressure increased [Unknown]
  - Myalgia [Recovered/Resolved]
  - Rhinorrhoea [Recovered/Resolved]
  - Fall [Unknown]
  - Tenderness [Unknown]
  - Skin disorder [Unknown]
  - Blood pressure systolic decreased [Unknown]
  - Pruritus [Recovering/Resolving]
  - Product use in unapproved indication [Unknown]

NARRATIVE: CASE EVENT DATE: 20131101
